FAERS Safety Report 8257380-9 (Version None)
Quarter: 2012Q2

REPORT INFORMATION
  Report Type: 
  Country: None (occurrence: None)
  Receive Date: 20120403
  Receipt Date: 20120402
  Transmission Date: 20120825
  Serious: Yes (Hospitalization, Other)
  Sender: FDA-Public Use
  Company Number: US-PFIZER INC-2012083362

PATIENT
  Sex: Male
  Weight: 92 kg

DRUGS (6)
  1. ASPIRIN [Suspect]
     Dosage: 325 MG, DAILY
     Dates: start: 20100101
  2. ATORVASTATIN CALCIUM [Suspect]
     Indication: BLOOD CHOLESTEROL INCREASED
     Dosage: UNK
     Dates: end: 20120101
  3. ISOSORBIDE MONONITRATE [Suspect]
     Dosage: 30 MG, DAILY
     Dates: start: 20120101, end: 20120101
  4. METOPROLOL TARTRATE [Suspect]
     Dosage: UNK, DAILY
     Dates: end: 20120301
  5. CARVEDILOL [Suspect]
     Indication: HYPERTENSION
     Dosage: 6.25 MG, DAILY
     Dates: start: 20120101, end: 20120101
  6. ASPIRIN [Suspect]
     Indication: ANTICOAGULANT THERAPY
     Dosage: 81 MG, DAILY
     Dates: start: 20030101

REACTIONS (8)
  - HEADACHE [None]
  - LOSS OF CONSCIOUSNESS [None]
  - MALAISE [None]
  - HIGH DENSITY LIPOPROTEIN DECREASED [None]
  - DIZZINESS [None]
  - HYPERHIDROSIS [None]
  - DYSPEPSIA [None]
  - BLOOD CHOLESTEROL INCREASED [None]
